FAERS Safety Report 6780843-X (Version None)
Quarter: 2010Q2

REPORT INFORMATION
  Report Type: 
  Country: None (occurrence: None)
  Receive Date: 20100621
  Receipt Date: 20100603
  Transmission Date: 20101027
  Serious: Yes (Hospitalization, Other)
  Sender: FDA-Public Use
  Company Number: US-BAYER-201019729NA

PATIENT
  Age: 34 Year
  Sex: Female
  Weight: 109 kg

DRUGS (18)
  1. YASMIN [Suspect]
     Indication: DRUG USE FOR UNKNOWN INDICATION
     Route: 048
     Dates: start: 20060301, end: 20090201
  2. OCELLA [Suspect]
     Indication: DRUG USE FOR UNKNOWN INDICATION
     Route: 048
     Dates: start: 20060301, end: 20090201
  3. ZYRTEC [Concomitant]
  4. SYMAX [Concomitant]
  5. AMBIEN CR [Concomitant]
  6. ALLEGRA [Concomitant]
  7. LEXAPRO [Concomitant]
  8. XANAX [Concomitant]
  9. IBUPROFEN [Concomitant]
  10. DEPO-PROVERA [Concomitant]
     Dates: start: 20000101, end: 20020101
  11. AMOXIL [Concomitant]
     Indication: BRONCHITIS
  12. AVELOX [Concomitant]
  13. DELSYM [Concomitant]
  14. TESSALON [Concomitant]
  15. PEARLS [Concomitant]
  16. PHENERGAN [Concomitant]
  17. PERCOCET [Concomitant]
     Indication: PAIN
  18. ROCEPHIN [Concomitant]
     Indication: COUGH

REACTIONS (9)
  - ABDOMINAL PAIN [None]
  - ABDOMINAL PAIN UPPER [None]
  - CHOLECYSTITIS CHRONIC [None]
  - DEPRESSION [None]
  - GALLBLADDER CHOLESTEROLOSIS [None]
  - GENERALISED ANXIETY DISORDER [None]
  - HEPATIC STEATOSIS [None]
  - OBSESSIVE-COMPULSIVE DISORDER [None]
  - WHITE BLOOD CELL COUNT INCREASED [None]
